FAERS Safety Report 5963128-0 (Version None)
Quarter: 2008Q4

REPORT INFORMATION
  Report Type: 
  Country: None (occurrence: None)
  Receive Date: 20081124
  Receipt Date: 20081110
  Transmission Date: 20090506
  Serious: Yes (Other)
  Sender: FDA-Public Use
  Company Number: IT-ELI_LILLY_AND_COMPANY-IT200811002084

PATIENT
  Age: 82 Year
  Sex: Male

DRUGS (8)
  1. HUMULIN N [Suspect]
     Indication: DIABETES MELLITUS INADEQUATE CONTROL
     Dosage: 15 IU, EACH EVENING
     Route: 065
  2. HUMULIN N [Suspect]
     Dosage: 10 IU, EACH EVENING
     Route: 065
  3. INSULIN [Concomitant]
     Indication: BLOOD GLUCOSE FLUCTUATION
     Dosage: 10 IU, EACH MORNING
     Route: 065
  4. INSULIN [Concomitant]
     Dosage: 15 U, AT LUNCH TIME
     Route: 065
  5. INSULIN [Concomitant]
     Dosage: 17 U, AT DINNER
     Route: 065
  6. INSULIN [Concomitant]
     Dosage: 7 IU, EACH MORNING
     Route: 065
  7. INSULIN [Concomitant]
     Dosage: 10 U, AT LUNCH
     Route: 065
  8. INSULIN [Concomitant]
     Dosage: 5 IU, EACH EVENING
     Route: 065

REACTIONS (3)
  - ANGINA PECTORIS [None]
  - BLOOD GLUCOSE INCREASED [None]
  - CARDIAC FAILURE CONGESTIVE [None]
